FAERS Safety Report 5498278-9 (Version None)
Quarter: 2007Q4

REPORT INFORMATION
  Report Type: 
  Country: None (occurrence: None)
  Receive Date: 20071025
  Receipt Date: 20070612
  Transmission Date: 20080405
  Serious: No
  Sender: FDA-Public Use
  Company Number: A0648553A

PATIENT
  Age: 64 Year
  Sex: Female
  Weight: 84.1 kg

DRUGS (2)
  1. ADVAIR DISKUS 100/50 [Suspect]
     Indication: DRUG USE FOR UNKNOWN INDICATION
     Dosage: 1PUFF TWICE PER DAY
     Route: 055
     Dates: start: 20070401, end: 20070419
  2. PREDNISONE [Concomitant]

REACTIONS (5)
  - COUGH [None]
  - FEELING ABNORMAL [None]
  - INCREASED UPPER AIRWAY SECRETION [None]
  - MALAISE [None]
  - PHARMACEUTICAL PRODUCT COMPLAINT [None]
